FAERS Safety Report 21000565 (Version 1)
Quarter: 2022Q3

REPORT INFORMATION
  Report Type: Spontaneous
  Country: US (occurrence: US)
  Receive Date: 20220623
  Receipt Date: 20220623
  Transmission Date: 20221027
  Serious: No
  Sender: FDA-Public Use
  Company Number: US-NOVARTISTESTPH-NVSC2022US143607

PATIENT
  Sex: Female

DRUGS (1)
  1. BIMATOPROST [Suspect]
     Active Substance: BIMATOPROST
     Indication: Product used for unknown indication
     Dosage: 5 ML
     Route: 065

REACTIONS (5)
  - Eye swelling [Unknown]
  - Dacryostenosis acquired [Unknown]
  - Vision blurred [Unknown]
  - Eye irritation [Unknown]
  - Eyelid oedema [Unknown]
